FAERS Safety Report 7214590-7 (Version None)
Quarter: 2011Q1

REPORT INFORMATION
  Report Type: 
  Country: None (occurrence: None)
  Receive Date: 20110107
  Receipt Date: 20110104
  Transmission Date: 20110831
  Serious: Yes (Other)
  Sender: FDA-Public Use
  Company Number: US-CEPHALON-2010006455

PATIENT
  Age: 73 Year
  Sex: Female

DRUGS (1)
  1. PROVIGIL [Suspect]
     Route: 048

REACTIONS (2)
  - SUICIDAL IDEATION [None]
  - ACTIVITIES OF DAILY LIVING IMPAIRED [None]
